FAERS Safety Report 10697290 (Version 1)
Quarter: 2015Q1

REPORT INFORMATION
  Report Type: Spontaneous
  Country: GB (occurrence: GB)
  Receive Date: 20150108
  Receipt Date: 20150108
  Transmission Date: 20150721
  Serious: Yes (Hospitalization)
  Sender: FDA-Public Use
  Company Number: GB-TEVA-532117ISR

PATIENT
  Age: 91 Year

DRUGS (9)
  1. QUININE [Concomitant]
     Active Substance: QUININE
     Dosage: 300 MILLIGRAM DAILY; AT NIGHT
  2. ASPIRIN. [Concomitant]
     Active Substance: ASPIRIN
     Dosage: 75 MILLIGRAM DAILY;
  3. CALCICHEW D3 [Concomitant]
     Active Substance: CALCIUM\CHOLECALCIFEROL
     Dosage: 2 DOSAGE FORMS DAILY;
  4. LOSARTAN [Concomitant]
     Active Substance: LOSARTAN
     Dosage: 50 MILLIGRAM DAILY; AT NIGHT
  5. PRAVASTATIN [Suspect]
     Active Substance: PRAVASTATIN\PRAVASTATIN SODIUM
     Dosage: 20 MILLIGRAM DAILY; AT NIGHT
  6. ATENOLOL. [Concomitant]
     Active Substance: ATENOLOL
     Dosage: 50 MILLIGRAM DAILY;
  7. BENDROFLUMETHIAZIDE [Concomitant]
     Active Substance: BENDROFLUMETHIAZIDE
     Dosage: 2.5 MILLIGRAM DAILY;
  8. LACTULOSE. [Concomitant]
     Active Substance: LACTULOSE
     Dosage: 10MLS TWICE A DAY WHEN REQUIRED
  9. OMEPRAZOLE. [Concomitant]
     Active Substance: OMEPRAZOLE
     Dosage: 20 MILLIGRAM DAILY;

REACTIONS (5)
  - Hypotension [Unknown]
  - Blood creatine phosphokinase increased [Recovering/Resolving]
  - Rhabdomyolysis [Unknown]
  - Acute kidney injury [Unknown]
  - Fall [Unknown]
